FAERS Safety Report 23058273 (Version 1)
Quarter: 2023Q4

REPORT INFORMATION
  Report Type: Spontaneous
  Country: US (occurrence: None)
  Receive Date: 20231012
  Receipt Date: 20231012
  Transmission Date: 20240110
  Serious: Yes (Hospitalization)
  Sender: FDA-Public Use
  Company Number: US-ROCHE-3431388

PATIENT
  Age: 57 Year
  Sex: Female
  Weight: 67.646 kg

DRUGS (1)
  1. OCREVUS [Suspect]
     Active Substance: OCRELIZUMAB
     Indication: Multiple sclerosis
     Route: 042
     Dates: start: 20220701

REACTIONS (1)
  - B-lymphocyte count increased [Unknown]

NARRATIVE: CASE EVENT DATE: 20230701
